FAERS Safety Report 22089815 (Version 2)
Quarter: 2023Q4

REPORT INFORMATION
  Report Type: Report from Study
  Country: CA (occurrence: CA)
  Receive Date: 20230313
  Receipt Date: 20231009
  Transmission Date: 20240109
  Serious: Yes (Death, Hospitalization)
  Sender: FDA-Public Use
  Company Number: CA-002147023-NVSC2023CA001468

PATIENT
  Age: 76 Year
  Sex: Male

DRUGS (1)
  1. TABRECTA [Suspect]
     Active Substance: CAPMATINIB
     Indication: Non-small cell lung cancer metastatic
     Dosage: 200 MG, QD
     Route: 048
     Dates: start: 20221215, end: 20230112

REACTIONS (8)
  - Adverse drug reaction [Fatal]
  - Somnolence [Unknown]
  - Fatigue [Unknown]
  - Dyspnoea [Unknown]
  - Nausea [Unknown]
  - Peripheral swelling [Unknown]
  - Decreased appetite [Unknown]
  - Product use issue [Unknown]
